FAERS Safety Report 21253455 (Version 1)
Quarter: 2022Q3

REPORT INFORMATION
  Report Type: Spontaneous
  Country: AU (occurrence: None)
  Receive Date: 20220825
  Receipt Date: 20220825
  Transmission Date: 20221027
  Serious: Yes (Other)
  Sender: FDA-Public Use
  Company Number: 2022A250119

PATIENT
  Age: 26216 Day
  Sex: Female

DRUGS (2)
  1. SYMBICORT [Suspect]
     Active Substance: BUDESONIDE\FORMOTEROL FUMARATE DIHYDRATE
     Indication: Asthma
     Dosage: 200/6, 1-2 DAILY UNKNOWN
     Route: 055
  2. SYMBICORT [Suspect]
     Active Substance: BUDESONIDE\FORMOTEROL FUMARATE DIHYDRATE
     Indication: Asthma
     Dosage: 200/6, TWO TIMES A DAY UNKNOWN
     Route: 055
     Dates: start: 20220629

REACTIONS (3)
  - Wheezing [Unknown]
  - Medication error [Unknown]
  - Drug delivery system issue [Recovered/Resolved]

NARRATIVE: CASE EVENT DATE: 20220629
